FAERS Safety Report 12486340 (Version 1)
Quarter: 2016Q2

REPORT INFORMATION
  Report Type: Spontaneous
  Country: US (occurrence: US)
  Receive Date: 20160621
  Receipt Date: 20160621
  Transmission Date: 20160815
  Serious: No
  Sender: FDA-Public Use
  Company Number: US-MEDA-2016060040

PATIENT
  Age: 59 Year
  Sex: Female
  Weight: 61 kg

DRUGS (1)
  1. DYMISTA [Suspect]
     Active Substance: AZELASTINE HYDROCHLORIDE\FLUTICASONE PROPIONATE
     Indication: UPPER-AIRWAY COUGH SYNDROME
     Dates: start: 20160208, end: 201602

REACTIONS (5)
  - Nasal congestion [Not Recovered/Not Resolved]
  - Epistaxis [Recovered/Resolved]
  - Scab [Unknown]
  - House dust allergy [Unknown]
  - Local swelling [Unknown]

NARRATIVE: CASE EVENT DATE: 2016
